FAERS Safety Report 10191630 (Version 1)
Quarter: 2014Q2

REPORT INFORMATION
  Report Type: Spontaneous
  Country: US (occurrence: None)
  Receive Date: 20140521
  Receipt Date: 20140521
  Transmission Date: 20141212
  Serious: Yes (Hospitalization)
  Sender: FDA-Public Use
  Company Number: 2014-US-005747

PATIENT
  Age: 53 Year
  Sex: Female
  Weight: 87.5 kg

DRUGS (3)
  1. XYREM [Suspect]
     Indication: NARCOLEPSY
     Route: 048
     Dates: start: 201206, end: 2012
  2. XYREM [Suspect]
     Indication: SOMNOLENCE
     Route: 048
     Dates: start: 201206, end: 2012
  3. MODAFINIL (MDAFINIL) [Concomitant]

REACTIONS (4)
  - Respiratory failure [None]
  - Chronic obstructive pulmonary disease [None]
  - Memory impairment [None]
  - Condition aggravated [None]
